FAERS Safety Report 4850724-7 (Version None)
Quarter: 2005Q4

REPORT INFORMATION
  Report Type: 
  Country: None (occurrence: None)
  Receive Date: 20051208
  Receipt Date: 20051125
  Transmission Date: 20060501
  Serious: Yes (Hospitalization)
  Sender: FDA-Public Use
  Company Number: 2005161953

PATIENT
  Age: 77 Year
  Sex: Male

DRUGS (9)
  1. TOLTERODINE TARTRATE [Suspect]
     Dosage: 4 MG (4 MG 1 IN 1 D) ORAL
     Route: 048
     Dates: start: 20050601, end: 20051001
  2. PANTOPRAZOLE SODIUM [Suspect]
     Dosage: 40 MG (40 MG 1 IN 1 D) ORAL
     Route: 048
     Dates: start: 20050601, end: 20051001
  3. HEMINEVRIN            (CLOMETHIAZOLE EDISILATE) [Concomitant]
  4. METOPROLOL SUCCINATE [Concomitant]
  5. AFI-B-TOTAL (VITAMINS NOS) [Concomitant]
  6. ALBYL-E (ACETYLSALICYLIC ACID, MAGNESIUM OXIDE) [Concomitant]
  7. CARBAMAZEPINE [Suspect]
     Dosage: 800 MG (400 MG 2 IN 1 D) ORAL
     Route: 048
     Dates: start: 20050601, end: 20051001
  8. DIGITOXIN TAB [Suspect]
     Dosage: 100 MCG (100 MCG 1 IN 1 D) ORAL
     Route: 048
     Dates: start: 20050601, end: 20051001
  9. FUROSEMIDE [Suspect]
     Indication: PULMONARY OEDEMA
     Dosage: 120 MG (60 MG 2 IN 1 D) ORAL
     Route: 048
     Dates: start: 20050601

REACTIONS (4)
  - AORTIC VALVE CALCIFICATION [None]
  - AORTIC VALVE STENOSIS [None]
  - ELECTROCARDIOGRAM ABNORMAL [None]
  - VENTRICULAR DYSFUNCTION [None]
